FAERS Safety Report 17860179 (Version 1)
Quarter: 2020Q2

REPORT INFORMATION
  Report Type: Spontaneous
  Country: SY (occurrence: SY)
  Receive Date: 20200604
  Receipt Date: 20200604
  Transmission Date: 20200714
  Serious: Yes (Hospitalization, Other)
  Sender: FDA-Public Use
  Company Number: SY-STRIDES ARCOLAB LIMITED-2020SP006676

PATIENT
  Age: 22 Year
  Sex: Female

DRUGS (1)
  1. DICLOFENAC [Suspect]
     Active Substance: DICLOFENAC
     Indication: ANALGESIC THERAPY
     Dosage: UNK
     Route: 030

REACTIONS (15)
  - Klebsiella infection [Recovered/Resolved]
  - Candida infection [Recovered/Resolved]
  - Gastric ulcer perforation [Recovered/Resolved]
  - Vomiting [Recovered/Resolved]
  - Ascites [Recovered/Resolved]
  - Abdominal pain upper [Recovered/Resolved]
  - Fungal peritonitis [Recovered/Resolved]
  - Escherichia infection [Recovered/Resolved]
  - Abdominal distension [Recovered/Resolved]
  - Chills [Recovered/Resolved]
  - Abdominal tenderness [Recovered/Resolved]
  - Pancreatitis acute [Recovered/Resolved]
  - Pneumoperitoneum [Recovered/Resolved]
  - Renal impairment [Recovered/Resolved]
  - Pyrexia [Recovered/Resolved]
